FAERS Safety Report 25941046 (Version 1)
Quarter: 2025Q4

REPORT INFORMATION
  Report Type: Spontaneous
  Country: US (occurrence: US)
  Receive Date: 20251020
  Receipt Date: 20251020
  Transmission Date: 20260117
  Serious: Yes (Other)
  Sender: RADIUS PHARM
  Company Number: US-RADIUS HEALTH INC.-US-RADIUS-25054796

PATIENT
  Sex: Female

DRUGS (1)
  1. TYMLOS [Suspect]
     Active Substance: ABALOPARATIDE
     Indication: Senile osteoporosis
     Dosage: 80 MICROGRAM, EVERY DAY AT BED TIME
     Route: 058
     Dates: start: 20210928

REACTIONS (3)
  - Pneumonia [Recovered/Resolved]
  - Renal pain [Recovered/Resolved]
  - Urinary tract infection [Recovered/Resolved]
